FAERS Safety Report 9405558 (Version 2)
Quarter: 2013Q3

REPORT INFORMATION
  Report Type: Spontaneous
  Country: US (occurrence: None)
  Receive Date: 20130715
  Receipt Date: 20130801
  Transmission Date: 20140515
  Serious: Yes (Other)
  Sender: FDA-Public Use
  Company Number: 1307RUS005455

PATIENT
  Age: 1 Year
  Sex: Female
  Weight: 8 kg

DRUGS (1)
  1. CEDAX [Suspect]
     Indication: GASTROINTESTINAL BACTERIAL INFECTION
     Dosage: 2 ML (9 MG/KG), QD
     Route: 048
     Dates: start: 20130607, end: 20130612

REACTIONS (2)
  - Body temperature increased [None]
  - Drug administration error [None]
